FAERS Safety Report 14446881 (Version 1)
Quarter: 2018Q1

REPORT INFORMATION
  Report Type: Spontaneous
  Country: US (occurrence: US)
  Receive Date: 20180126
  Receipt Date: 20180126
  Transmission Date: 20180509
  Serious: No
  Sender: FDA-Public Use
  Company Number: US-WEST-WARD PHARMACEUTICALS CORP.-US-H14001-17-00780

PATIENT
  Sex: Female

DRUGS (1)
  1. BALSALAZIDE [Suspect]
     Active Substance: BALSALAZIDE
     Indication: COLITIS ULCERATIVE
     Route: 065

REACTIONS (1)
  - Drug ineffective [Unknown]
